FAERS Safety Report 12084090 (Version 3)
Quarter: 2016Q1

REPORT INFORMATION
  Report Type: Report from Study
  Country: CO (occurrence: CO)
  Receive Date: 20160217
  Receipt Date: 20160315
  Transmission Date: 20160526
  Serious: Yes (Hospitalization)
  Sender: FDA-Public Use
  Company Number: PHHY2016CO013868

PATIENT
  Age: 72 Year
  Sex: Male
  Weight: 47 kg

DRUGS (6)
  1. COLECALCIFEROL W/MAGNESIUM [Concomitant]
     Indication: PRODUCT USED FOR UNKNOWN INDICATION
     Dosage: 2000 IU, QD
     Route: 065
  2. SANDOSTATIN LAR DEPOT [Suspect]
     Active Substance: OCTREOTIDE ACETATE
     Indication: NEUROENDOCRINE TUMOUR
     Dosage: 30 MG, QMO
     Route: 030
     Dates: start: 20101216, end: 20160119
  3. AFINITOR [Suspect]
     Active Substance: EVEROLIMUS
     Indication: NEUROENDOCRINE TUMOUR
     Dosage: 10 MG, QD
     Route: 048
     Dates: start: 20150313
  4. SYNTHROID [Concomitant]
     Active Substance: LEVOTHYROXINE SODIUM
     Indication: HYPOTHYROIDISM
     Dosage: 88 MG, QD
     Route: 048
  5. AFINITOR [Suspect]
     Active Substance: EVEROLIMUS
     Dosage: 5 MG, UNK
     Route: 065
  6. ASPIRIN. [Concomitant]
     Active Substance: ASPIRIN
     Indication: PRODUCT USED FOR UNKNOWN INDICATION
     Dosage: 100 MG, QD
     Route: 048

REACTIONS (15)
  - Back pain [Recovering/Resolving]
  - Injection site pain [Recovering/Resolving]
  - Depression [Unknown]
  - Malaise [Unknown]
  - Weight decreased [Unknown]
  - Irritability [Unknown]
  - Injection site discomfort [Unknown]
  - Inflammation [Unknown]
  - General physical health deterioration [Unknown]
  - Abdominal pain lower [Recovering/Resolving]
  - Oedema peripheral [Unknown]
  - Groin pain [Recovering/Resolving]
  - Abdominal pain [Recovering/Resolving]
  - Fatigue [Unknown]
  - Diarrhoea [Unknown]

NARRATIVE: CASE EVENT DATE: 201509
